FAERS Safety Report 7308308-7 (Version None)
Quarter: 2011Q1

REPORT INFORMATION
  Report Type: 
  Country: None (occurrence: None)
  Receive Date: 20110223
  Receipt Date: 20110216
  Transmission Date: 20110831
  Serious: Yes (Other)
  Sender: FDA-Public Use
  Company Number: A0913977A

PATIENT
  Age: 38 Year
  Sex: Female

DRUGS (2)
  1. ADVAIR HFA [Suspect]
     Indication: ASTHMA
     Dosage: 1PUFF TWICE PER DAY
     Route: 055
  2. ALBUTEROL [Concomitant]

REACTIONS (6)
  - VITAMIN D DECREASED [None]
  - PRODUCT QUALITY ISSUE [None]
  - STRESS [None]
  - FALL [None]
  - RED BLOOD CELL COUNT DECREASED [None]
  - MACROCYTOSIS [None]
